FAERS Safety Report 5483819-8 (Version None)
Quarter: 2007Q4

REPORT INFORMATION
  Report Type: 
  Country: None (occurrence: None)
  Receive Date: 20071012
  Receipt Date: 20071005
  Transmission Date: 20080405
  Serious: Yes (Other)
  Sender: FDA-Public Use
  Company Number: B0490891A

PATIENT
  Sex: Female

DRUGS (7)
  1. RANITIDINE HCL [Suspect]
     Indication: DRUG USE FOR UNKNOWN INDICATION
  2. TAXOL [Suspect]
     Route: 042
  3. CARBOPLATIN [Suspect]
     Indication: DRUG USE FOR UNKNOWN INDICATION
     Route: 042
  4. GABAPENTIN [Suspect]
     Indication: NEUROTOXICITY
  5. SODIUM CHLORIDE [Concomitant]
     Route: 042
  6. TROPISETRON [Concomitant]
     Route: 042
  7. METOCLOPRAMIDE [Concomitant]

REACTIONS (7)
  - ABDOMINAL PAIN UPPER [None]
  - DYSGEUSIA [None]
  - MALAISE [None]
  - NAIL DISORDER [None]
  - NEUROTOXICITY [None]
  - OEDEMA PERIPHERAL [None]
  - PERIPHERAL COLDNESS [None]
